FAERS Safety Report 14045329 (Version 2)
Quarter: 2017Q4

REPORT INFORMATION
  Report Type: Spontaneous
  Country: US (occurrence: US)
  Receive Date: 20171005
  Receipt Date: 20171117
  Transmission Date: 20180321
  Serious: No
  Sender: FDA-Public Use
  Company Number: US-ASTRAZENECA-2017SE98285

PATIENT
  Sex: Male
  Weight: 73.9 kg

DRUGS (1)
  1. PULMICORT TURBUHALER [Suspect]
     Active Substance: BUDESONIDE
     Dosage: 180.0MG UNKNOWN
     Route: 055

REACTIONS (5)
  - Incorrect dose administered [Unknown]
  - Wheezing [Unknown]
  - Intentional product misuse [Unknown]
  - Wrong technique in product usage process [Unknown]
  - Device failure [Unknown]
